FAERS Safety Report 5210811-0 (Version None)
Quarter: 2006Q4

REPORT INFORMATION
  Report Type: 
  Country: None (occurrence: None)
  Receive Date: 20061101
  Receipt Date: 20060726
  Transmission Date: 20070319
  Serious: No
  Sender: FDA-Public Use
  Company Number: 2006PV018210

PATIENT
  Age: 57 Year
  Sex: Male
  Weight: 86.4102 kg

DRUGS (2)
  1. SYMLIN [Suspect]
     Indication: DIABETES MELLITUS NON-INSULIN-DEPENDENT
     Dosage: 60 MCG;TID;SC
     Route: 058
  2. HUMULIN 70/30 [Concomitant]

REACTIONS (3)
  - BODY MASS INDEX DECREASED [None]
  - NAUSEA [None]
  - WEIGHT DECREASED [None]
